FAERS Safety Report 17412229 (Version 1)
Quarter: 2020Q1

REPORT INFORMATION
  Report Type: Spontaneous
  Country: US (occurrence: US)
  Receive Date: 20200212
  Receipt Date: 20200212
  Transmission Date: 20200409
  Serious: Yes (Hospitalization)
  Sender: FDA-Public Use
  Company Number: None

PATIENT
  Sex: Female

DRUGS (1)
  1. ENOXAPARIN [Suspect]
     Active Substance: ENOXAPARIN
     Route: 058

REACTIONS (7)
  - Device malfunction [None]
  - Device failure [None]
  - Injury associated with device [None]
  - Exposure to contaminated device [None]
  - Needle issue [None]
  - Syringe issue [None]
  - Contusion [None]

NARRATIVE: CASE EVENT DATE: 20200211
